FAERS Safety Report 21214686 (Version 2)
Quarter: 2022Q3

REPORT INFORMATION
  Report Type: Spontaneous
  Country: IN (occurrence: IN)
  Receive Date: 20220816
  Receipt Date: 20220913
  Transmission Date: 20221026
  Serious: Yes (Hospitalization, Other)
  Sender: FDA-Public Use
  Company Number: IN-IPCA LABORATORIES LIMITED-IPC-2022-IN-001083

PATIENT

DRUGS (1)
  1. CHLOROQUINE PHOSPHATE [Suspect]
     Active Substance: CHLOROQUINE PHOSPHATE
     Indication: Malaria
     Dosage: UNK
     Route: 065

REACTIONS (5)
  - Stevens-Johnson syndrome [Recovering/Resolving]
  - Visual impairment [Unknown]
  - Tooth malformation [Unknown]
  - Blepharitis [Unknown]
  - Dry eye [Unknown]
